FAERS Safety Report 8338329-7 (Version None)
Quarter: 2012Q2

REPORT INFORMATION
  Report Type: 
  Country: None (occurrence: None)
  Receive Date: 20120504
  Receipt Date: 20120425
  Transmission Date: 20120825
  Serious: Yes (Hospitalization, Other)
  Sender: FDA-Public Use
  Company Number: US-US-EMD SERONO, INC.-7081513

PATIENT
  Sex: Male

DRUGS (4)
  1. SEROSTIM [Suspect]
     Indication: PRODUCT USED FOR UNKNOWN INDICATION
     Dates: start: 20090101, end: 20110101
  2. UNSPECIFIED ANTIRETROVIRAL THERAPY [Concomitant]
     Indication: PRODUCT USED FOR UNKNOWN INDICATION
     Dates: start: 19940101
  3. EGRIFTA [Suspect]
     Route: 058
     Dates: start: 20111101, end: 20120401
  4. EGRIFTA [Suspect]
     Indication: LIPODYSTROPHY ACQUIRED
     Route: 058
     Dates: start: 20110101, end: 20110801

REACTIONS (4)
  - NEOPLASM [None]
  - T-LYMPHOCYTE COUNT INCREASED [None]
  - WEIGHT INCREASED [None]
  - BASAL CELL CARCINOMA [None]
